FAERS Safety Report 9701590 (Version 2)
Quarter: 2013Q4

REPORT INFORMATION
  Report Type: Spontaneous
  Country: US (occurrence: US)
  Receive Date: 20131119
  Receipt Date: 20131119
  Transmission Date: 20140711
  Serious: Yes (Other)
  Sender: FDA-Public Use
  Company Number: US-ORACLE-2011S1000083

PATIENT
  Age: 53 Year
  Sex: Male
  Weight: 83.92 kg

DRUGS (16)
  1. KRYSTEXXA INJECTION [Suspect]
     Indication: GOUTY TOPHUS
     Route: 042
     Dates: start: 20111013, end: 20111013
  2. KRYSTEXXA INJECTION [Suspect]
     Indication: GOUTY TOPHUS
     Route: 042
     Dates: start: 20110926, end: 20110926
  3. KRYSTEXXA INJECTION [Suspect]
     Indication: GOUTY TOPHUS
     Route: 042
     Dates: start: 20110912, end: 20110912
  4. SOLU-MEDROL [Concomitant]
     Indication: PREMEDICATION
     Route: 042
     Dates: start: 20111013, end: 20111013
  5. SOLU-MEDROL [Concomitant]
     Indication: PREMEDICATION
     Route: 042
     Dates: start: 20110926, end: 20110926
  6. SOLU-MEDROL [Concomitant]
     Indication: PREMEDICATION
     Route: 042
     Dates: start: 20110912, end: 20110912
  7. ZYRTEC [Concomitant]
     Indication: PREMEDICATION
     Route: 048
     Dates: start: 20111013, end: 20111013
  8. ZYRTEC [Concomitant]
     Indication: PREMEDICATION
     Route: 048
     Dates: start: 20110926, end: 20110926
  9. ZYRTEC [Concomitant]
     Indication: PREMEDICATION
     Route: 048
     Dates: start: 20110912, end: 20110912
  10. TYLENOL /00020001/ [Concomitant]
     Indication: PREMEDICATION
     Route: 048
     Dates: start: 20111013, end: 20111013
  11. TYLENOL /00020001/ [Concomitant]
     Indication: PREMEDICATION
     Route: 048
     Dates: start: 20110926, end: 20111026
  12. TYLENOL /00020001/ [Concomitant]
     Indication: PREMEDICATION
     Route: 048
     Dates: start: 20110912, end: 20110912
  13. AMBIEN [Concomitant]
     Indication: PRODUCT USED FOR UNKNOWN INDICATION
  14. NAPROXEN [Concomitant]
     Indication: PRODUCT USED FOR UNKNOWN INDICATION
  15. HUMIRA [Concomitant]
     Indication: ARTHRITIS
  16. ALLOPURINOL [Concomitant]
     Indication: GOUT
     Dates: end: 20110912

REACTIONS (2)
  - Infusion related reaction [Recovered/Resolved]
  - Headache [Recovered/Resolved]
